FAERS Safety Report 22759238 (Version 11)
Quarter: 2025Q3

REPORT INFORMATION
  Report Type: Report from Study
  Country: JP (occurrence: JP)
  Receive Date: 20230728
  Receipt Date: 20250722
  Transmission Date: 20251020
  Serious: Yes (Hospitalization)
  Sender: TAKEDA
  Company Number: JP-TAKEDA-2023TJP003295AA

PATIENT
  Age: 42 Year
  Sex: Female
  Weight: 53 kg

DRUGS (48)
  1. TEDUGLUTIDE [Suspect]
     Active Substance: TEDUGLUTIDE
     Indication: Short-bowel syndrome
     Dosage: 0.025 MILLIGRAM/KILOGRAM, QD
     Dates: start: 20220621, end: 20220627
  2. TEDUGLUTIDE [Suspect]
     Active Substance: TEDUGLUTIDE
     Indication: Crohn^s disease
  3. TEDUGLUTIDE [Suspect]
     Active Substance: TEDUGLUTIDE
  4. TEDUGLUTIDE [Suspect]
     Active Substance: TEDUGLUTIDE
  5. OMEGA-3-ACID ETHYL ESTERS [Concomitant]
     Active Substance: OMEGA-3-ACID ETHYL ESTERS
  6. ALBUMIN TANNATE [Concomitant]
     Active Substance: ALBUMIN TANNATE
     Indication: Short-bowel syndrome
  7. ALBUMIN TANNATE [Concomitant]
     Active Substance: ALBUMIN TANNATE
     Indication: Crohn^s disease
  8. ALUMINUM SILICATE [Concomitant]
     Active Substance: ALUMINUM SILICATE
     Indication: Short-bowel syndrome
  9. ALUMINUM SILICATE [Concomitant]
     Active Substance: ALUMINUM SILICATE
     Indication: Crohn^s disease
  10. BIFIDOBACTERIUM SPP. [Concomitant]
     Active Substance: BIFIDOBACTERIUM SPP.
     Indication: Short-bowel syndrome
  11. BIFIDOBACTERIUM SPP. [Concomitant]
     Active Substance: BIFIDOBACTERIUM SPP.
     Indication: Crohn^s disease
  12. LOPEMIN [Concomitant]
     Indication: Short-bowel syndrome
  13. BIO-THREE [Concomitant]
     Active Substance: HERBALS
     Indication: Short-bowel syndrome
  14. BIO-THREE [Concomitant]
     Active Substance: HERBALS
     Indication: Crohn^s disease
  15. MIYA-BM [Concomitant]
     Active Substance: CLOSTRIDIUM BUTYRICUM SPORES STRAIN M-55
     Indication: Short-bowel syndrome
  16. MIYA-BM [Concomitant]
     Active Substance: CLOSTRIDIUM BUTYRICUM SPORES STRAIN M-55
     Indication: Crohn^s disease
  17. AMINO ACIDS\CARBOHYDRATES\MINERALS\SOYBEAN OIL\VITAMINS [Concomitant]
     Active Substance: AMINO ACIDS\CARBOHYDRATES\MINERALS\SOYBEAN OIL\VITAMINS
     Indication: Short-bowel syndrome
  18. AMINO ACIDS\CARBOHYDRATES\MINERALS\SOYBEAN OIL\VITAMINS [Concomitant]
     Active Substance: AMINO ACIDS\CARBOHYDRATES\MINERALS\SOYBEAN OIL\VITAMINS
     Indication: Crohn^s disease
  19. CALCIUM CHLORIDE\POTASSIUM CHLORIDE\SODIUM ACETATE\SODIUM CHLORIDE [Concomitant]
     Active Substance: CALCIUM CHLORIDE\POTASSIUM CHLORIDE\SODIUM ACETATE\SODIUM CHLORIDE
     Indication: Short-bowel syndrome
  20. AMINO ACIDS\DEXTROSE\ELECTROLYTES NOS\MINERALS\VITAMINS [Concomitant]
     Active Substance: AMINO ACIDS\DEXTROSE\ELECTROLYTES NOS\MINERALS\VITAMINS
     Indication: Short-bowel syndrome
  21. AMINO ACIDS\DEXTROSE\ELECTROLYTES NOS\MINERALS\VITAMINS [Concomitant]
     Active Substance: AMINO ACIDS\DEXTROSE\ELECTROLYTES NOS\MINERALS\VITAMINS
     Indication: Short-bowel syndrome
  22. SOYBEAN OIL [Concomitant]
     Active Substance: SOYBEAN OIL
     Indication: Short-bowel syndrome
  23. EDOXABAN TOSYLATE [Concomitant]
     Active Substance: EDOXABAN TOSYLATE
     Indication: Venous thrombosis
  24. BIOTIN [Concomitant]
     Active Substance: BIOTIN
  25. URSODIOL [Concomitant]
     Active Substance: URSODIOL
  26. POTASSIUM ASPARTATE [Concomitant]
     Active Substance: POTASSIUM ASPARTATE
  27. ELDECALCITOL [Concomitant]
     Active Substance: ELDECALCITOL
  28. KCL CORRECTIVE [Concomitant]
  29. ASELEND [Concomitant]
  30. DESLORATADINE [Concomitant]
     Active Substance: DESLORATADINE
  31. GASTER [Concomitant]
     Active Substance: FAMOTIDINE
  32. ALLOID G [Concomitant]
     Active Substance: SODIUM ALGINATE
  33. ZINC [Concomitant]
     Active Substance: ZINC
  34. LEVOTHYROXINE SODIUM [Concomitant]
     Active Substance: LEVOTHYROXINE SODIUM
  35. BETAMETHASONE DIPROPIONATE [Concomitant]
     Active Substance: BETAMETHASONE DIPROPIONATE
  36. RINDERON V [Concomitant]
     Active Substance: BETAMETHASONE VALERATE
  37. DIMETHICONE [Concomitant]
     Active Substance: DIMETHICONE
  38. MOSAPRIDE CITRATE [Concomitant]
     Active Substance: MOSAPRIDE CITRATE
  39. FAMOTIDINE [Concomitant]
     Active Substance: FAMOTIDINE
  40. VOLTAREN [Concomitant]
     Active Substance: DICLOFENAC SODIUM
  41. CEFAZOLIN SODIUM [Concomitant]
     Active Substance: CEFAZOLIN SODIUM
  42. TEICOPLANIN [Concomitant]
     Active Substance: TEICOPLANIN
  43. MESALAMINE [Concomitant]
     Active Substance: MESALAMINE
  44. ACETAMINOPHEN [Concomitant]
     Active Substance: ACETAMINOPHEN
     Indication: Short-bowel syndrome
  45. PRIMPERAN [Concomitant]
     Active Substance: METOCLOPRAMIDE HYDROCHLORIDE
     Indication: Short-bowel syndrome
  46. CODEINE PHOSPHATE [Concomitant]
     Active Substance: CODEINE PHOSPHATE
     Indication: Short-bowel syndrome
  47. SODIUM FERROUS CITRATE [Concomitant]
     Active Substance: SODIUM FERROUS CITRATE
  48. Solita t granules no.3 [Concomitant]

REACTIONS (12)
  - Cellulitis [Recovered/Resolved]
  - Device related infection [Recovered/Resolved]
  - Device related infection [Recovered/Resolved]
  - Device related infection [Recovered/Resolved]
  - Subileus [Recovered/Resolved]
  - Stomatitis [Recovered/Resolved]
  - Pyrexia [Recovered/Resolved]
  - Taste disorder [Recovered/Resolved]
  - Vomiting [Recovered/Resolved]
  - Underdose [Recovered/Resolved]
  - Underdose [Recovered/Resolved]
  - Underdose [Recovered/Resolved]

NARRATIVE: CASE EVENT DATE: 20220621
